FAERS Safety Report 4377724-8 (Version None)
Quarter: 2004Q2

REPORT INFORMATION
  Report Type: 
  Country: None (occurrence: None)
  Receive Date: 20040615
  Receipt Date: 20040517
  Transmission Date: 20050107
  Serious: Yes (Other)
  Sender: FDA-Public Use
  Company Number: PHEH2004US05400

PATIENT
  Age: 69 Year
  Sex: Female

DRUGS (9)
  1. ZELNORM [Suspect]
     Indication: IRRITABLE BOWEL SYNDROME
     Dosage: 6 MG, BID
     Route: 048
     Dates: start: 20040401, end: 20040517
  2. ZELNORM [Suspect]
     Dosage: 6 MG, PRN
     Route: 048
     Dates: start: 20040526
  3. ACIPHEX [Concomitant]
  4. LOTREL [Concomitant]
  5. TOPROL-XL [Concomitant]
  6. SYNTHROID [Concomitant]
  7. LORAZEPAM [Concomitant]
  8. ANTIVERT ^PFIZER^ [Concomitant]
  9. DIAZEPAM [Concomitant]

REACTIONS (6)
  - CONSTIPATION [None]
  - FLATULENCE [None]
  - HAEMORRHOIDAL HAEMORRHAGE [None]
  - HAEMORRHOIDS [None]
  - HEADACHE [None]
  - RECTAL HAEMORRHAGE [None]
